FAERS Safety Report 4886863-4 (Version None)
Quarter: 2006Q1

REPORT INFORMATION
  Report Type: 
  Country: None (occurrence: None)
  Receive Date: 20060119
  Receipt Date: 20060109
  Transmission Date: 20060701
  Serious: Yes (Other)
  Sender: FDA-Public Use
  Company Number: 200610053GDS

PATIENT
  Sex: Male

DRUGS (2)
  1. ASPIRIN [Suspect]
     Dosage: 81 MG, TOTALDAILY, ORAL
     Route: 048
  2. LIPITOR [Concomitant]

REACTIONS (3)
  - MOBILITY DECREASED [None]
  - MUSCLE SPASMS [None]
  - SENSORY DISTURBANCE [None]
